FAERS Safety Report 6326781-8 (Version None)
Quarter: 2009Q3

REPORT INFORMATION
  Report Type: 
  Country: None (occurrence: None)
  Receive Date: 20090825
  Receipt Date: 20090818
  Transmission Date: 20100115
  Serious: Yes (Death)
  Sender: FDA-Public Use
  Company Number: JP-AVENTIS-200912306JP

PATIENT
  Age: 73 Year
  Sex: Male

DRUGS (4)
  1. TAXOTERE [Suspect]
     Route: 041
  2. ESTRACYT                           /00327002/ [Concomitant]
     Dosage: DOSE: 4 CAPSULES
  3. ESTRACYT                           /00327002/ [Concomitant]
     Dosage: DOSE: 2 CAPSULES
  4. DEXAMETHASONE [Concomitant]

REACTIONS (1)
  - INTERSTITIAL LUNG DISEASE [None]
